FAERS Safety Report 19170959 (Version 1)
Quarter: 2021Q2

REPORT INFORMATION
  Report Type: Spontaneous
  Country: JP (occurrence: JP)
  Receive Date: 20210422
  Receipt Date: 20210422
  Transmission Date: 20210717
  Serious: Yes (Life-Threatening, Other)
  Sender: FDA-Public Use
  Company Number: JP-ASTRAZENECA-2021A336023

PATIENT
  Age: 73 Year
  Sex: Female

DRUGS (4)
  1. CBDCA [Suspect]
     Active Substance: CARBOPLATIN
     Indication: SMALL CELL LUNG CANCER
     Dosage: AUC5, DOSE UNKNOWN, EVERY THREE WEEKS
     Route: 065
  2. CDDP [Suspect]
     Active Substance: CISPLATIN
     Indication: SMALL CELL LUNG CANCER
     Route: 065
  3. IMFINZI [Suspect]
     Active Substance: DURVALUMAB
     Indication: SMALL CELL LUNG CANCER
     Route: 041
  4. VP?16 [Concomitant]
     Active Substance: ETOPOSIDE
     Indication: SMALL CELL LUNG CANCER
     Dosage: 80 MG/M2, THREE TIMES EVERY THREE WEEKS. ON DAY 1, 2 AND 3 OF EACH CYCLE
     Route: 065

REACTIONS (5)
  - Renal impairment [Unknown]
  - Anaemia [Unknown]
  - Platelet count decreased [Recovered/Resolved]
  - Purpura [Unknown]
  - Gastrointestinal toxicity [Unknown]
